FAERS Safety Report 21789851 (Version 1)
Quarter: 2022Q4

REPORT INFORMATION
  Report Type: Spontaneous
  Country: US (occurrence: None)
  Receive Date: 20221228
  Receipt Date: 20221228
  Transmission Date: 20230112
  Serious: No
  Sender: FDA-Public Use
  Company Number: None

PATIENT
  Age: 55 Year
  Sex: Female
  Weight: 54 kg

DRUGS (2)
  1. CUTAQUIG [Suspect]
     Active Substance: HUMAN IMMUNOGLOBULIN G
     Indication: Blood immunoglobulin G decreased
     Dosage: FREQUENCY : EVERY OTHER WEEK;?
     Route: 058
     Dates: start: 20221105
  2. CUTAQUIG [Suspect]
     Active Substance: HUMAN IMMUNOGLOBULIN G
     Indication: Blood immunoglobulin G decreased
     Dosage: OTHER FREQUENCY : 10G EVERY 14 DAYS;?
     Route: 058
     Dates: start: 20221105

REACTIONS (9)
  - Infusion related reaction [None]
  - Dizziness [None]
  - Nausea [None]
  - Thinking abnormal [None]
  - Aphasia [None]
  - Feeling abnormal [None]
  - Increased appetite [None]
  - Dysgeusia [None]
  - Pollakiuria [None]

NARRATIVE: CASE EVENT DATE: 20221105
